FAERS Safety Report 22092837 (Version 1)
Quarter: 2023Q1

REPORT INFORMATION
  Report Type: Spontaneous
  Country: US (occurrence: US)
  Receive Date: 20230314
  Receipt Date: 20230314
  Transmission Date: 20230417
  Serious: Yes (Other)
  Sender: FDA-Public Use
  Company Number: US-drreddys-SPO/USA/23/0162260

PATIENT
  Age: 30 Year
  Sex: Male

DRUGS (8)
  1. PROPOFOL [Suspect]
     Active Substance: PROPOFOL
     Indication: Myoclonic epilepsy
  2. PROPOFOL [Suspect]
     Active Substance: PROPOFOL
     Indication: Status epilepticus
  3. MIDAZOLAM [Suspect]
     Active Substance: MIDAZOLAM
     Indication: Status epilepticus
  4. MIDAZOLAM [Suspect]
     Active Substance: MIDAZOLAM
     Indication: Myoclonic epilepsy
  5. KETAMINE [Suspect]
     Active Substance: KETAMINE
     Indication: Myoclonic epilepsy
  6. KETAMINE [Suspect]
     Active Substance: KETAMINE
     Indication: Status epilepticus
  7. PENTOBARBITAL [Suspect]
     Active Substance: PENTOBARBITAL
     Indication: Status epilepticus
  8. PENTOBARBITAL [Suspect]
     Active Substance: PENTOBARBITAL
     Indication: Myoclonic epilepsy

REACTIONS (2)
  - Ileus [Unknown]
  - Product use in unapproved indication [Unknown]
